FAERS Safety Report 7744722-3 (Version None)
Quarter: 2011Q3

REPORT INFORMATION
  Report Type: 
  Country: None (occurrence: None)
  Receive Date: 20110912
  Receipt Date: 20110609
  Transmission Date: 20111222
  Serious: No
  Sender: FDA-Public Use
  Company Number: US-BAYER-2011-050227

PATIENT
  Age: 50 Year
  Sex: Female

DRUGS (1)
  1. MAGNEVIST [Suspect]
     Indication: NUCLEAR MAGNETIC RESONANCE IMAGING
     Dosage: 12 CC'S-LEFT ANTICUBITAL
     Route: 042
     Dates: start: 20110906, end: 20110906

REACTIONS (3)
  - MALAISE [None]
  - DYSPNOEA [None]
  - SNEEZING [None]
